FAERS Safety Report 15789031 (Version 1)
Quarter: 2019Q1

REPORT INFORMATION
  Report Type: Spontaneous
  Country: US (occurrence: US)
  Receive Date: 20190104
  Receipt Date: 20190104
  Transmission Date: 20190417
  Serious: No
  Sender: FDA-Public Use
  Company Number: US-BAYER-2018-246381

PATIENT
  Age: 57 Year
  Sex: Male

DRUGS (2)
  1. CLIMARA [Suspect]
     Active Substance: ESTRADIOL
     Indication: TRANSGENDER HORMONAL THERAPY
     Dosage: UNK
     Route: 062
     Dates: start: 201807
  2. CLIMARA [Suspect]
     Active Substance: ESTRADIOL
     Indication: TRANSGENDER HORMONAL THERAPY
     Dosage: UNK
     Route: 062
     Dates: start: 20181001

REACTIONS (8)
  - Oestradiol decreased [None]
  - Anosmia [None]
  - Off label use [None]
  - Product adhesion issue [Recovered/Resolved]
  - Poor quality product administered [Recovered/Resolved]
  - Device malfunction [Recovered/Resolved]
  - Feeling abnormal [None]
  - Product use in unapproved indication [None]

NARRATIVE: CASE EVENT DATE: 201810
